FAERS Safety Report 10141864 (Version 2)
Quarter: 2014Q4

REPORT INFORMATION
  Report Type: Spontaneous
  Country: IT (occurrence: IT)
  Receive Date: 20140429
  Receipt Date: 20141021
  Transmission Date: 20150528
  Serious: Yes (Hospitalization)
  Sender: FDA-Public Use
  Company Number: IT-PFIZER INC-2014114489

PATIENT
  Age: 65 Year
  Sex: Male

DRUGS (6)
  1. CARDIOASPIRIN [Concomitant]
     Active Substance: ASPIRIN
     Dosage: 100 MG, UNK
  2. ALAPRIL [Concomitant]
     Dosage: 20 MG, UNK
  3. FULCROSUPRA [Concomitant]
     Active Substance: FENOFIBRATE
     Dosage: UNK
     Route: 048
     Dates: start: 20140301
  4. FLUCONAZOLE. [Suspect]
     Active Substance: FLUCONAZOLE
     Indication: ONYCHOMYCOSIS
     Dosage: 150 MG, WEEKLY
     Route: 048
     Dates: start: 20140216, end: 20140301
  5. BOSIX [Suspect]
     Active Substance: CIPROFLOXACIN HYDROCHLORIDE
     Indication: CYSTITIS
     Dosage: 1 G, 1X/DAY
     Route: 048
     Dates: start: 20140312, end: 20140318
  6. OMEPRAZEN [Concomitant]
     Active Substance: OMEPRAZOLE
     Dosage: 20 MG, UNK
     Route: 048

REACTIONS (4)
  - Rash generalised [Recovering/Resolving]
  - Oral mucosa erosion [Recovering/Resolving]
  - Pruritus [Recovering/Resolving]
  - Genital erythema [Recovering/Resolving]

NARRATIVE: CASE EVENT DATE: 20140316
